FAERS Safety Report 5887917-6 (Version None)
Quarter: 2008Q3

REPORT INFORMATION
  Report Type: 
  Country: None (occurrence: None)
  Receive Date: 20080917
  Receipt Date: 20080917
  Transmission Date: 20090109
  Serious: Yes (Other)
  Sender: FDA-Public Use
  Company Number: None

PATIENT
  Sex: Female

DRUGS (1)
  1. HALOPERIDOL [Suspect]
     Dosage: 1MG 2X DAILY PO
     Route: 048

REACTIONS (2)
  - DYSTONIA [None]
  - MUSCULOSKELETAL STIFFNESS [None]
